FAERS Safety Report 7483160-8 (Version None)
Quarter: 2011Q2

REPORT INFORMATION
  Report Type: 
  Country: None (occurrence: None)
  Receive Date: 20110516
  Receipt Date: 20100507
  Transmission Date: 20111010
  Serious: No
  Sender: FDA-Public Use
  Company Number: US-AMGEN-TCS405952

PATIENT
  Age: 32 Year
  Sex: Female
  Weight: 138 kg

DRUGS (3)
  1. ENBREL [Suspect]
     Indication: PSORIASIS
     Dosage: 50 MG, 2 TIMES/WK
     Route: 058
     Dates: start: 20100325
  2. HERBAL SUPPLEMENT [Suspect]
  3. DIPHENHYDRAMINE HYDROCHLORIDE [Suspect]
     Dosage: UNK UNK, UNK
     Dates: start: 20100401, end: 20100420

REACTIONS (4)
  - ABDOMINAL DISCOMFORT [None]
  - DISORIENTATION [None]
  - FEELING JITTERY [None]
  - DIZZINESS [None]
